FAERS Safety Report 12417943 (Version 1)
Quarter: 2016Q2

REPORT INFORMATION
  Report Type: Spontaneous
  Country: DE (occurrence: DE)
  Receive Date: 20160531
  Receipt Date: 20160531
  Transmission Date: 20160815
  Serious: Yes (Other)
  Sender: FDA-Public Use
  Company Number: DE-AUROBINDO-AUR-APL-2015-04174

PATIENT
  Age: 14 Year
  Sex: Female

DRUGS (1)
  1. OLANZAPIN-ACTAVIS 5 MG FILMCOATED TABLET [Suspect]
     Active Substance: OLANZAPINE
     Indication: DECREASED APPETITE
     Dosage: 5 MG, ONCE A DAY
     Route: 065
     Dates: start: 201504

REACTIONS (4)
  - Off label use [None]
  - Product use issue [Unknown]
  - Leukopenia [Recovering/Resolving]
  - Aspartate aminotransferase increased [Not Recovered/Not Resolved]

NARRATIVE: CASE EVENT DATE: 20150507
